FAERS Safety Report 19762156 (Version 1)
Quarter: 2021Q3

REPORT INFORMATION
  Report Type: Spontaneous
  Country: US (occurrence: US)
  Receive Date: 20210829
  Receipt Date: 20210829
  Transmission Date: 20211014
  Serious: Yes (Hospitalization)
  Sender: FDA-Public Use
  Company Number: None

PATIENT
  Age: 68 Year
  Sex: Female
  Weight: 51.75 kg

DRUGS (5)
  1. TYLENOL EXTRA STRENGTH [Concomitant]
     Active Substance: ACETAMINOPHEN
  2. ZZZQUIL PUREZZZS [Suspect]
     Active Substance: MELATONIN
     Indication: SLEEP DISORDER
     Dosage: ?          QUANTITY:10 ML;?
     Route: 048
  3. LIDOCAINE PATCH 5% [Suspect]
     Active Substance: LIDOCAINE
     Indication: SPINAL PAIN
     Dosage: ?          QUANTITY:1 PATCH(ES);?
     Route: 062
     Dates: start: 20210802, end: 20210817
  4. VITAMIN D [Concomitant]
     Active Substance: VITAMIN D NOS
  5. CALCIUM 600 MG [Concomitant]

REACTIONS (5)
  - Seizure like phenomena [None]
  - Disorientation [None]
  - Accidental exposure to product [None]
  - Syncope [None]
  - Balance disorder [None]

NARRATIVE: CASE EVENT DATE: 20210819
